FAERS Safety Report 4299994-7 (Version None)
Quarter: 2004Q1

REPORT INFORMATION
  Report Type: 
  Country: None (occurrence: None)
  Receive Date: 20040218
  Receipt Date: 20040209
  Transmission Date: 20041129
  Serious: Yes (Hospitalization)
  Sender: FDA-Public Use
  Company Number: STA-AE-04-MTX-053

PATIENT
  Age: 46 Year
  Sex: Female

DRUGS (2)
  1. METHOTREXATE [Suspect]
     Indication: RHEUMATOID ARTHRITIS
     Dosage: 7.5 MG 1X PER 1 WK ORAL
     Route: 048
  2. PREDNISOLONE [Concomitant]

REACTIONS (5)
  - BLOOD CREATINE PHOSPHOKINASE INCREASED [None]
  - NECROTISING FASCIITIS [None]
  - RENAL IMPAIRMENT [None]
  - THROMBOCYTOPENIA [None]
  - TOXIC SHOCK SYNDROME STREPTOCOCCAL [None]
